FAERS Safety Report 23653970 (Version 1)
Quarter: 2024Q1

REPORT INFORMATION
  Report Type: Spontaneous
  Country: US (occurrence: None)
  Receive Date: 20240319
  Receipt Date: 20240319
  Transmission Date: 20240410
  Serious: Yes (Disabling, Other)
  Sender: FDA-Public Use
  Company Number: None

PATIENT
  Age: 66 Year
  Sex: Female
  Weight: 85.5 kg

DRUGS (19)
  1. INCRUSE ELLIPTA [Suspect]
     Active Substance: UMECLIDINIUM BROMIDE
     Indication: Asthma
     Dosage: OTHER QUANTITY : 1 INHALATION(S);?
     Route: 055
     Dates: start: 20240308
  2. Tazanidin [Concomitant]
  3. BENZTROPINE [Concomitant]
     Active Substance: BENZTROPINE
  4. DICLOFENAC [Concomitant]
     Active Substance: DICLOFENAC
  5. BRIVIACT [Concomitant]
     Active Substance: BRIVARACETAM
  6. Benedry [Concomitant]
  7. DIETARY SUPPLEMENT [Concomitant]
     Active Substance: DIETARY SUPPLEMENT
  8. COENZYME Q10 [Concomitant]
     Active Substance: DIETARY SUPPLEMENT\UBIDECARENONE
  9. Ester-C [Concomitant]
  10. DIETARY SUPPLEMENT\HERBALS\MILK THISTLE [Concomitant]
     Active Substance: MILK THISTLE
  11. Calcium Magnesium [Concomitant]
  12. POTASSIUM [Concomitant]
     Active Substance: POTASSIUM
  13. NEEM [Concomitant]
  14. GSE [Concomitant]
  15. B-12 w/ Multivitamin liquid [Concomitant]
  16. VITAMIN E [Concomitant]
     Active Substance: .ALPHA.-TOCOPHEROL
  17. COD LIVER OIL [Concomitant]
     Active Substance: COD LIVER OIL
  18. Lions Mushrooms [Concomitant]
  19. CHLOROPHYLL [Concomitant]

REACTIONS (8)
  - Feeling of despair [None]
  - Oropharyngeal pain [None]
  - Rhinorrhoea [None]
  - Limb discomfort [None]
  - Depression [None]
  - Movement disorder [None]
  - Paranasal sinus discomfort [None]
  - Dysuria [None]

NARRATIVE: CASE EVENT DATE: 20240314
